FAERS Safety Report 7767857-8 (Version None)
Quarter: 2011Q3

REPORT INFORMATION
  Report Type: 
  Country: None (occurrence: None)
  Receive Date: 20110922
  Receipt Date: 20100923
  Transmission Date: 20111222
  Serious: Yes (Other)
  Sender: FDA-Public Use
  Company Number: US-ASTRAZENECA-2010SE44887

PATIENT
  Age: 462 Month
  Sex: Male
  Weight: 90.7 kg

DRUGS (1)
  1. SEROQUEL XR [Suspect]
     Indication: BIPOLAR I DISORDER
     Route: 048
     Dates: start: 20100101, end: 20100601

REACTIONS (6)
  - MOOD ALTERED [None]
  - ANGER [None]
  - SUICIDAL IDEATION [None]
  - AGGRESSION [None]
  - FEELING ABNORMAL [None]
  - DRUG DOSE OMISSION [None]
